FAERS Safety Report 19578253 (Version 1)
Quarter: 2021Q3

REPORT INFORMATION
  Report Type: Report from Study
  Country: None (occurrence: US)
  Receive Date: 20210719
  Receipt Date: 20210719
  Transmission Date: 20211014
  Serious: Yes (Other)
  Sender: FDA-Public Use
  Company Number: US-ABBVIE-20K-163-3218583-00

PATIENT
  Age: 75 Year
  Sex: Female

DRUGS (2)
  1. DUOPA [Suspect]
     Active Substance: CARBIDOPA\LEVODOPA
     Dosage: CD:2.9ML/H
     Route: 050
     Dates: start: 20210707
  2. DUOPA [Suspect]
     Active Substance: CARBIDOPA\LEVODOPA
     Indication: PRODUCT USED FOR UNKNOWN INDICATION
     Dosage: CD:3.1 ML/H
     Route: 050
     Dates: start: 20191230, end: 20210707

REACTIONS (14)
  - Hyporesponsive to stimuli [Unknown]
  - Anger [Unknown]
  - Sluggishness [Unknown]
  - Head titubation [Unknown]
  - Mobility decreased [Unknown]
  - Somnolence [Unknown]
  - Weight decreased [Unknown]
  - Anxiety [Unknown]
  - Device issue [Recovered/Resolved]
  - Catatonia [Unknown]
  - Altered state of consciousness [Unknown]
  - Inappropriate schedule of product administration [Unknown]
  - Insomnia [Unknown]
  - Aggression [Unknown]

NARRATIVE: CASE EVENT DATE: 20191230
